FAERS Safety Report 5339192-9 (Version None)
Quarter: 2007Q2

REPORT INFORMATION
  Report Type: 
  Country: None (occurrence: None)
  Receive Date: 20070530
  Receipt Date: 20070522
  Transmission Date: 20071010
  Serious: Yes (Other)
  Sender: FDA-Public Use
  Company Number: GB-PFIZER INC-2007041500

PATIENT
  Age: 56 Year
  Sex: Female

DRUGS (3)
  1. LYRICA [Suspect]
     Indication: HEADACHE
     Route: 048
     Dates: start: 20070402, end: 20070410
  2. SUMATRIPTAN SUCCINATE [Concomitant]
     Indication: MIGRAINE
     Route: 048
  3. VENLAFAXINE HCL [Concomitant]
     Indication: HEADACHE
     Route: 048

REACTIONS (3)
  - ERYTHEMA [None]
  - MYALGIA [None]
  - SWELLING FACE [None]
